FAERS Safety Report 9754372 (Version 1)
Quarter: 2013Q4

REPORT INFORMATION
  Report Type: Spontaneous
  Country: US (occurrence: US)
  Receive Date: 20131213
  Receipt Date: 20131213
  Transmission Date: 20140711
  Serious: No
  Sender: FDA-Public Use
  Company Number: US-PFIZER INC-2013356209

PATIENT
  Age: 5 Year
  Sex: Female
  Weight: 9.5 kg

DRUGS (5)
  1. GENOTROPIN MQ [Suspect]
     Indication: SILVER-RUSSELL SYNDROME
     Dosage: 0.4 MG, 1X/DAY
     Dates: start: 201010
  2. MIRALAX [Concomitant]
     Indication: CONSTIPATION
     Dosage: UNK
  3. ZANTAC [Concomitant]
     Indication: GASTROOESOPHAGEAL REFLUX DISEASE
     Dosage: UNK
  4. LIDOCAINE [Concomitant]
     Dosage: UNK
  5. ALBUTEROL [Concomitant]
     Indication: ASTHMA
     Dosage: UNK

REACTIONS (2)
  - Injection site erosion [Not Recovered/Not Resolved]
  - Injection site mass [Not Recovered/Not Resolved]
